FAERS Safety Report 21059184 (Version 1)
Quarter: 2022Q3

REPORT INFORMATION
  Report Type: Spontaneous
  Country: CA (occurrence: CA)
  Receive Date: 20220708
  Receipt Date: 20220708
  Transmission Date: 20221026
  Serious: Yes (Other)
  Sender: FDA-Public Use
  Company Number: CA-SAMSUNG BIOEPIS-SB-2022-16133

PATIENT
  Age: 22 Year
  Sex: Male
  Weight: 92 kg

DRUGS (1)
  1. INFLIXIMAB [Suspect]
     Active Substance: INFLIXIMAB
     Indication: Crohn^s disease
     Route: 042

REACTIONS (7)
  - Limb mass [Unknown]
  - Acne [Unknown]
  - Blood pressure diastolic increased [Unknown]
  - Weight fluctuation [Unknown]
  - Erythema nodosum [Unknown]
  - Intentional product use issue [Unknown]
  - Off label use [Unknown]
